FAERS Safety Report 4304883-5 (Version None)
Quarter: 2004Q1

REPORT INFORMATION
  Report Type: 
  Country: None (occurrence: None)
  Receive Date: 20040226
  Receipt Date: 20040105
  Transmission Date: 20041129
  Serious: No
  Sender: FDA-Public Use
  Company Number: US-GLAXOSMITHKLINE-A0491704A

PATIENT
  Sex: Female

DRUGS (1)
  1. WELLBUTRIN [Suspect]

REACTIONS (5)
  - AGITATION [None]
  - ANOREXIA [None]
  - INSOMNIA [None]
  - PANIC ATTACK [None]
  - TREMOR [None]
